FAERS Safety Report 8595979 (Version 2)
Quarter: 2013Q3

REPORT INFORMATION
  Report Type: Spontaneous
  Country: US (occurrence: US)
  Receive Date: 20120605
  Receipt Date: 20130927
  Transmission Date: 20140515
  Serious: No
  Sender: FDA-Public Use
  Company Number: US-ASTRAZENECA-2012SE35553

PATIENT
  Age: 70 Year
  Sex: Female

DRUGS (15)
  1. NEXIUM [Suspect]
     Indication: GASTROOESOPHAGEAL REFLUX DISEASE
     Route: 048
  2. NEXIUM [Suspect]
     Indication: GASTROOESOPHAGEAL REFLUX DISEASE
     Dosage: TWO TIMES PER DAY
     Route: 048
     Dates: start: 20060105, end: 20100106
  3. NEXIUM [Suspect]
     Indication: GASTROOESOPHAGEAL REFLUX DISEASE
     Route: 048
     Dates: start: 20060105
  4. PREVACID [Concomitant]
  5. PROTONIX [Concomitant]
  6. TUMS [Concomitant]
  7. ALKA-SELTZER [Concomitant]
  8. PEPTO-BISMOL [Concomitant]
  9. ROLAIDS [Concomitant]
  10. METHYLPREDNISOLONE [Concomitant]
     Dates: start: 20130226
  11. OMEPRAZOLE [Concomitant]
     Dates: start: 20130311
  12. SINGULAIR [Concomitant]
     Dates: start: 20060105
  13. VERAPAMIL [Concomitant]
     Dates: start: 20060105
  14. GABAPENTIN [Concomitant]
     Dates: start: 20060105
  15. TRAMADOL HCL [Concomitant]
     Dates: start: 20060223

REACTIONS (8)
  - Osteoporosis [Unknown]
  - Lower limb fracture [Unknown]
  - Fall [Unknown]
  - Glaucoma [Unknown]
  - Vitamin D deficiency [Unknown]
  - Arthritis [Unknown]
  - Osteoarthritis [Unknown]
  - Headache [Unknown]
